FAERS Safety Report 9687089 (Version 2)
Quarter: 2013Q4

REPORT INFORMATION
  Report Type: Report from Study
  Country: US (occurrence: US)
  Receive Date: 20131113
  Receipt Date: 20131113
  Transmission Date: 20140711
  Serious: Yes (Hospitalization, Other)
  Sender: FDA-Public Use
  Company Number: US-ASTRAZENECA-2013SE74244

PATIENT
  Age: 66 Year
  Sex: Female
  Weight: 89.4 kg

DRUGS (11)
  1. NEXIUM [Suspect]
     Indication: DYSPEPSIA
     Route: 048
  2. TOPROL XL [Suspect]
     Indication: HYPERTENSION
     Route: 048
     Dates: start: 2007, end: 201209
  3. TOPROL XL [Suspect]
     Indication: HYPERTENSION
     Route: 048
     Dates: start: 201209, end: 201209
  4. TOPROL XL [Suspect]
     Indication: HYPERTENSION
     Dosage: QUARTER OF 100 MG DAILY/CUTTING 100 MG TABLETS IN 4 PIECES AND TOOK 1 OF 4 PIECES
     Route: 048
     Dates: start: 201209, end: 20131002
  5. TOPROL XL [Suspect]
     Indication: HYPERTENSION
     Route: 048
     Dates: start: 201309
  6. CRESTOR [Suspect]
     Indication: BLOOD CHOLESTEROL ABNORMAL
     Route: 048
     Dates: start: 2007, end: 20131002
  7. BAYER ASPIRIN [Concomitant]
     Indication: ILL-DEFINED DISORDER
     Route: 048
  8. LETROZOLE [Concomitant]
     Indication: BREAST CANCER
  9. METFORMIN [Concomitant]
     Indication: DIABETES MELLITUS
     Route: 048
  10. VITAMIN D [Concomitant]
     Route: 048
  11. CALCIUM [Concomitant]
     Route: 048

REACTIONS (14)
  - Overdose [Recovered/Resolved]
  - Breast cancer [Unknown]
  - Chronic obstructive pulmonary disease [Unknown]
  - Pneumothorax [Unknown]
  - Dyspepsia [Not Recovered/Not Resolved]
  - Chest discomfort [Not Recovered/Not Resolved]
  - Influenza [Recovered/Resolved]
  - Diabetes mellitus [Not Recovered/Not Resolved]
  - Osteoporosis [Unknown]
  - Drug effect increased [Recovered/Resolved]
  - Drug dispensing error [Recovered/Resolved]
  - Intentional drug misuse [Recovered/Resolved]
  - Incorrect dose administered [Recovered/Resolved]
  - Drug dose omission [Unknown]
